FAERS Safety Report 19224076 (Version 2)
Quarter: 2021Q2

REPORT INFORMATION
  Report Type: Spontaneous
  Country: PT (occurrence: PT)
  Receive Date: 20210505
  Receipt Date: 20210511
  Transmission Date: 20210717
  Serious: Yes (Other)
  Sender: FDA-Public Use
  Company Number: PT-GILEAD-2021-0528292

PATIENT
  Age: 73 Year

DRUGS (3)
  1. VEKLURY [Suspect]
     Active Substance: REMDESIVIR
     Dosage: 100MG PER DAY ON THE FOLLOWING DAYS
     Route: 042
     Dates: start: 20210409, end: 20210410
  2. VEKLURY [Suspect]
     Active Substance: REMDESIVIR
     Indication: COVID-19 TREATMENT
     Dosage: 200MG PER DAY ON FIRST DAY
     Route: 042
     Dates: start: 20210408, end: 20210408
  3. OXYGEN. [Concomitant]
     Active Substance: OXYGEN

REACTIONS (3)
  - Hypertensive crisis [Recovered/Resolved]
  - Flushing [Recovered/Resolved]
  - Limb discomfort [Recovered/Resolved]

NARRATIVE: CASE EVENT DATE: 20210410
